FAERS Safety Report 21061397 (Version 1)
Quarter: 2022Q3

REPORT INFORMATION
  Report Type: Spontaneous
  Country: US (occurrence: US)
  Receive Date: 20220709
  Receipt Date: 20220709
  Transmission Date: 20221027
  Serious: No
  Sender: FDA-Public Use
  Company Number: US-BRISTOL-MYERS SQUIBB COMPANY-2022-069678

PATIENT
  Age: 78 Year
  Sex: Female
  Weight: 61.23 kg

DRUGS (1)
  1. REVLIMID [Suspect]
     Active Substance: LENALIDOMIDE
     Indication: Plasma cell myeloma
     Dosage: 1 TABLET DAILY FOR 14 DAYS ON THEN 7 DAYS OFF, THEN REPEAT
     Route: 048
     Dates: start: 20220207

REACTIONS (1)
  - Alopecia [Not Recovered/Not Resolved]
